FAERS Safety Report 7479919-3 (Version None)
Quarter: 2011Q2

REPORT INFORMATION
  Report Type: 
  Country: None (occurrence: None)
  Receive Date: 20110516
  Receipt Date: 20110506
  Transmission Date: 20111010
  Serious: Yes (Hospitalization)
  Sender: FDA-Public Use
  Company Number: US-BIOGENIDEC-2011BI005377

PATIENT
  Age: 47 Year
  Sex: Male

DRUGS (2)
  1. TYSABRI [Suspect]
     Indication: MULTIPLE SCLEROSIS
     Route: 042
     Dates: start: 20090716
  2. LEVETIRACETAM [Concomitant]
     Indication: CONVULSION PROPHYLAXIS

REACTIONS (9)
  - CONVULSION [None]
  - DRUG EFFECT DECREASED [None]
  - MUSCLE SPASMS [None]
  - TONGUE INJURY [None]
  - MYALGIA [None]
  - EXCORIATION [None]
  - PARAESTHESIA [None]
  - DISTURBANCE IN ATTENTION [None]
  - APHASIA [None]
